FAERS Safety Report 5025522-4 (Version None)
Quarter: 2006Q2

REPORT INFORMATION
  Report Type: 
  Country: None (occurrence: None)
  Receive Date: 20060607
  Receipt Date: 20060523
  Transmission Date: 20061013
  Serious: Yes (Other)
  Sender: FDA-Public Use
  Company Number: FR200601002295

PATIENT
  Age: 76 Year
  Sex: Female

DRUGS (12)
  1. FORTEO [Suspect]
     Indication: OSTEOPOROSIS
     Dosage: 20 UG, DAILY (1/D), SUBCUTANEOUS
     Route: 058
     Dates: start: 20050601, end: 20060509
  2. FORTEO [Concomitant]
  3. PRITOR (TELMISARTAN) [Concomitant]
  4. HYPERIUM (RILMENIDINE) [Concomitant]
  5. KARDEGIC (ACETYLSALICYLATE LYSINE) [Concomitant]
  6. CORTAN [Concomitant]
  7. PAROXETINE [Concomitant]
  8. PRAZEPAM [Concomitant]
  9. DIOALGO (DEXTROPORPOXYPHENE, PARACETAMOL) [Concomitant]
  10. IMOVANE (ZOPICLONE) [Concomitant]
  11. OROCAL D(3) (CALCIUM CARBONATE, COLECALCIFEROL) [Concomitant]
  12. PYSLIA (PSYLLIUM) [Concomitant]

REACTIONS (1)
  - WEIGHT DECREASED [None]
